FAERS Safety Report 23567418 (Version 1)
Quarter: 2024Q1

REPORT INFORMATION
  Report Type: Spontaneous
  Country: NL (occurrence: NL)
  Receive Date: 20240226
  Receipt Date: 20240226
  Transmission Date: 20240410
  Serious: Yes (Other)
  Sender: FDA-Public Use
  Company Number: None

PATIENT
  Age: 51 Year
  Sex: Female
  Weight: 75 kg

DRUGS (2)
  1. OXYBUTYNIN [Suspect]
     Active Substance: OXYBUTYNIN\OXYBUTYNIN CHLORIDE
     Indication: Hot flush
     Dosage: 1 PIECE ONCE PER DAY??OXYBUTYNINE/ BRAND NAME NOT SPECIFIED.
     Route: 065
     Dates: start: 20230906, end: 20231031
  2. LEVOTHYROXINE [Interacting]
     Active Substance: LEVOTHYROXINE\LEVOTHYROXINE SODIUM
     Indication: Autoimmune thyroiditis
     Dosage: LEVOTHYROXINE TABLET 25UG (ACID)
     Route: 065
     Dates: start: 20221001

REACTIONS (2)
  - Hyperthyroidism [Recovered/Resolved]
  - Drug interaction [Recovered/Resolved]
